FAERS Safety Report 18344877 (Version 1)
Quarter: 2020Q4

REPORT INFORMATION
  Report Type: Spontaneous
  Country: US (occurrence: US)
  Receive Date: 20201005
  Receipt Date: 20201005
  Transmission Date: 20210114
  Serious: Yes (Death, Other)
  Sender: FDA-Public Use
  Company Number: US-PURDUE-USA-2020-0167877

PATIENT
  Age: 47 Year
  Sex: Male

DRUGS (2)
  1. DILAUDID [Suspect]
     Active Substance: HYDROMORPHONE HYDROCHLORIDE
     Indication: PRODUCT USED FOR UNKNOWN INDICATION
     Dosage: UNK
     Route: 048
  2. HYDROMORPHONE TABLETS [Suspect]
     Active Substance: HYDROMORPHONE
     Indication: PRODUCT USED FOR UNKNOWN INDICATION
     Dosage: UNK
     Route: 048

REACTIONS (10)
  - Cardiac failure congestive [Unknown]
  - Arteriosclerosis [Fatal]
  - Diabetes mellitus [Unknown]
  - Hypertension [Unknown]
  - Anxiety [Unknown]
  - Insomnia [Unknown]
  - Affective disorder [Unknown]
  - Adverse drug reaction [Unknown]
  - Unevaluable event [Unknown]
  - Anger [Unknown]

NARRATIVE: CASE EVENT DATE: 20160821
